FAERS Safety Report 4736919-1 (Version None)
Quarter: 2005Q3

REPORT INFORMATION
  Report Type: 
  Country: None (occurrence: None)
  Receive Date: 20050803
  Receipt Date: 20050719
  Transmission Date: 20060218
  Serious: Yes (Other)
  Sender: FDA-Public Use
  Company Number: US014938

PATIENT
  Sex: Female

DRUGS (2)
  1. ACTIQ [Suspect]
  2. ISOSORBIDE MONONITRATE [Suspect]

REACTIONS (6)
  - ACCIDENTAL EXPOSURE [None]
  - ACCIDENTAL OVERDOSE [None]
  - CONVULSION [None]
  - EYE ROLLING [None]
  - INCORRECT DOSE ADMINISTERED [None]
  - TREMOR [None]
